FAERS Safety Report 4699889-0 (Version None)
Quarter: 2005Q2

REPORT INFORMATION
  Report Type: 
  Country: None (occurrence: None)
  Receive Date: 20050624
  Receipt Date: 20050309
  Transmission Date: 20051028
  Serious: Yes (Hospitalization, Other)
  Sender: FDA-Public Use
  Company Number: US-MERCK-0503USA02008

PATIENT
  Age: 63 Year
  Sex: Male
  Weight: 104 kg

DRUGS (8)
  1. VIOXX [Suspect]
     Indication: MONARTHRITIS
     Route: 048
     Dates: start: 20000412, end: 20040901
  2. VIOXX [Suspect]
     Route: 048
     Dates: start: 20000412, end: 20040901
  3. VIOXX [Suspect]
     Indication: BACK PAIN
     Route: 048
     Dates: start: 20000412, end: 20040901
  4. VIOXX [Suspect]
     Route: 048
     Dates: start: 20000412, end: 20040901
  5. ALLEGRA [Concomitant]
     Route: 065
  6. ASPIRIN [Concomitant]
     Route: 065
  7. VITAMINS (UNSPECIFIED) [Concomitant]
     Route: 065
  8. COUGH, COLD, AND FLU THERAPIES (UNSPECIFIED) [Concomitant]
     Route: 065

REACTIONS (8)
  - ANGINA UNSTABLE [None]
  - ATHEROSCLEROSIS [None]
  - CARDIAC DISORDER [None]
  - DYSPHAGIA [None]
  - ERECTILE DYSFUNCTION [None]
  - INTERVERTEBRAL DISC PROTRUSION [None]
  - LIBIDO DECREASED [None]
  - MYOCARDIAL INFARCTION [None]
